FAERS Safety Report 11820922 (Version 2)
Quarter: 2016Q1

REPORT INFORMATION
  Report Type: Spontaneous
  Country: US (occurrence: US)
  Receive Date: 20151210
  Receipt Date: 20160202
  Transmission Date: 20160525
  Serious: No
  Sender: FDA-Public Use
  Company Number: US-JNJFOC-20150700812

PATIENT
  Age: 48 Year
  Sex: Female

DRUGS (3)
  1. FLAGYL [Concomitant]
     Active Substance: METRONIDAZOLE\METRONIDAZOLE HYDROCHLORIDE
  2. ZOMIG [Concomitant]
     Active Substance: ZOLMITRIPTAN
  3. IMBRUVICA [Suspect]
     Active Substance: IBRUTINIB
     Indication: CHRONIC LYMPHOCYTIC LEUKAEMIA
     Route: 048
     Dates: start: 20150520

REACTIONS (9)
  - Ageusia [Unknown]
  - Abdominal pain [Unknown]
  - Dyspepsia [Unknown]
  - Dysgeusia [Not Recovered/Not Resolved]
  - Adverse drug reaction [Unknown]
  - Gait disturbance [Recovering/Resolving]
  - White blood cell count increased [Unknown]
  - Stomatitis [Recovered/Resolved]
  - Malaise [Unknown]

NARRATIVE: CASE EVENT DATE: 2015
